FAERS Safety Report 6310259-1 (Version None)
Quarter: 2009Q3

REPORT INFORMATION
  Report Type: 
  Country: None (occurrence: None)
  Receive Date: 20090811
  Receipt Date: 20090728
  Transmission Date: 20100115
  Serious: Yes (Death, Hospitalization)
  Sender: FDA-Public Use
  Company Number: KV200800171

PATIENT
  Age: 75 Year
  Sex: Male
  Weight: 59 kg

DRUGS (5)
  1. MORPHINE SULFATE [Suspect]
     Indication: PAIN MANAGEMENT
     Dosage: 30 MG, 1 TABLET TWICE DAILY, ORAL
     Route: 048
     Dates: start: 20070101, end: 20080704
  2. MORPHINE SULFATE [Suspect]
     Indication: PAIN MANAGEMENT
     Dosage: 60 MG, QD, ORAL; 15 MG, 1 TAB EVERY 4-6 HOURS, ORAL
     Route: 048
     Dates: start: 20070101, end: 20080704
  3. MORPHINE SULFATE [Suspect]
     Indication: PAIN MANAGEMENT
     Dosage: 60 MG, QD, ORAL; 15 MG, 1 TAB EVERY 4-6 HOURS, ORAL
     Route: 048
     Dates: start: 20080101, end: 20080704
  4. MORPHINE SULFATE [Suspect]
     Indication: PAIN MANAGEMENT
     Dosage: 15 MG, Q 4-6 H, ORAL; 60 MG, 1 TABLET DAILY, ORAL
     Route: 048
     Dates: start: 20070101, end: 20080704
  5. MORPHINE SULFATE [Suspect]
     Indication: PAIN MANAGEMENT
     Dosage: 15 MG, Q 4-6 H, ORAL; 60 MG, 1 TABLET DAILY, ORAL
     Route: 048
     Dates: start: 20080101, end: 20080704

REACTIONS (5)
  - BACK DISORDER [None]
  - LARYNGEAL CANCER [None]
  - METASTASIS [None]
  - NEOPLASM MALIGNANT [None]
  - PRODUCT QUALITY ISSUE [None]
